FAERS Safety Report 4324236-3 (Version None)
Quarter: 2004Q1

REPORT INFORMATION
  Report Type: 
  Country: None (occurrence: None)
  Receive Date: 20040326
  Receipt Date: 20040112
  Transmission Date: 20041129
  Serious: No
  Sender: FDA-Public Use
  Company Number: US-GLAXOSMITHKLINE-A0492582A

PATIENT
  Age: 64 Year
  Sex: Female

DRUGS (10)
  1. ADVAIR DISKUS 100/50 [Suspect]
     Indication: ASTHMA
     Dosage: 1PUFF PER DAY
     Route: 055
     Dates: start: 20030901
  2. ALBUTEROL [Concomitant]
  3. SYNTHROID [Concomitant]
  4. PAXIL CR [Concomitant]
  5. MULTI-VITAMIN [Concomitant]
  6. STOOL SOFTENER [Concomitant]
  7. VIT C [Concomitant]
  8. VIT B6 [Concomitant]
  9. TUMS [Concomitant]
  10. ALLERGY SHOTS [Concomitant]

REACTIONS (2)
  - PALPITATIONS [None]
  - RESPIRATION ABNORMAL [None]
